FAERS Safety Report 12454781 (Version 1)
Quarter: 2016Q2

REPORT INFORMATION
  Report Type: Spontaneous
  Country: US (occurrence: None)
  Receive Date: 20160609
  Receipt Date: 20160609
  Transmission Date: 20160815
  Serious: No
  Sender: FDA-Public Use
  Company Number: None

PATIENT
  Age: 85 Year
  Sex: Female

DRUGS (24)
  1. JANUVIA [Concomitant]
     Active Substance: SITAGLIPTIN PHOSPHATE
  2. BIOTIN [Concomitant]
     Active Substance: BIOTIN
  3. VALSARTAN. [Concomitant]
     Active Substance: VALSARTAN
  4. PRESERVISION [Concomitant]
     Active Substance: MINERALS\VITAMINS
  5. METOPROLOL TARTRATE. [Concomitant]
     Active Substance: METOPROLOL TARTRATE
  6. CARBIDOPA. [Concomitant]
     Active Substance: CARBIDOPA
  7. MELATONIN [Concomitant]
     Active Substance: MELATONIN
  8. OXYCODONE AND ACETAMINOPHEN [Concomitant]
     Active Substance: ACETAMINOPHEN\OXYCODONE HYDROCHLORIDE
  9. METFORMIN [Concomitant]
     Active Substance: METFORMIN HYDROCHLORIDE
  10. TRAMADOL. [Concomitant]
     Active Substance: TRAMADOL
  11. GABAPENTIN. [Concomitant]
     Active Substance: GABAPENTIN
  12. LEVOTHYROXIN [Concomitant]
     Active Substance: LEVOTHYROXINE
  13. XGEVA [Concomitant]
     Active Substance: DENOSUMAB
  14. AFINITOR [Suspect]
     Active Substance: EVEROLIMUS
     Indication: NEOPLASM MALIGNANT
     Route: 048
     Dates: start: 20160316
  15. DULOXETINE. [Concomitant]
     Active Substance: DULOXETINE
  16. ZETIA [Concomitant]
     Active Substance: EZETIMIBE
  17. FISH OIL [Concomitant]
     Active Substance: FISH OIL
  18. GLIMEPIRIDE. [Concomitant]
     Active Substance: GLIMEPIRIDE
  19. ASPIRIN. [Concomitant]
     Active Substance: ASPIRIN
  20. EXEMESTANE. [Concomitant]
     Active Substance: EXEMESTANE
  21. PANTOPRAZOLE [Concomitant]
     Active Substance: PANTOPRAZOLE SODIUM
  22. FERROUS SULF [Concomitant]
  23. VITAMIN C [Concomitant]
     Active Substance: ASCORBIC ACID
  24. OYSTER SHELL [Concomitant]
     Active Substance: OSTREA EDULIS SHELL

REACTIONS (2)
  - Pruritus [None]
  - Rash [None]

NARRATIVE: CASE EVENT DATE: 20160519
